FAERS Safety Report 9151264 (Version 2)
Quarter: 2013Q1

REPORT INFORMATION
  Report Type: Spontaneous
  Country: JP (occurrence: None)
  Receive Date: 20130201
  Receipt Date: 20130227
  Transmission Date: 20140127
  Serious: Yes (Death, Other)
  Sender: FDA-Public Use
  Company Number: JP-20130004

PATIENT
  Age: 81 Year
  Sex: Male

DRUGS (2)
  1. LIPODOL [Suspect]
     Indication: THERAPEUTIC EMBOLISATION
     Route: 013
     Dates: start: 20110727, end: 20110727
  2. GELATIN (GELATIN) (GELATIN) [Concomitant]

REACTIONS (7)
  - Liver abscess [None]
  - Off label use [None]
  - Sepsis [None]
  - Tumour necrosis [None]
  - Bile duct obstruction [None]
  - Bacterial infection [None]
  - Immunosuppression [None]
